FAERS Safety Report 6943925-5 (Version None)
Quarter: 2010Q3

REPORT INFORMATION
  Report Type: 
  Country: None (occurrence: None)
  Receive Date: 20100826
  Receipt Date: 20100819
  Transmission Date: 20110219
  Serious: Yes (Hospitalization)
  Sender: FDA-Public Use
  Company Number: B0670487A

PATIENT
  Age: 100 Year
  Sex: Female

DRUGS (2)
  1. ARIXTRA [Suspect]
     Indication: PRODUCT USED FOR UNKNOWN INDICATION
     Dosage: 2.5MG PER DAY
     Route: 058
     Dates: start: 20100601, end: 20100618
  2. LASIX [Concomitant]
     Indication: PRODUCT USED FOR UNKNOWN INDICATION
     Route: 065
     Dates: start: 20100601

REACTIONS (5)
  - ABDOMINAL COMPARTMENT SYNDROME [None]
  - ANAEMIA [None]
  - EXTRINSIC VASCULAR COMPRESSION [None]
  - FISTULA [None]
  - HAEMATOMA [None]
